FAERS Safety Report 23634316 (Version 1)
Quarter: 2024Q1

REPORT INFORMATION
  Report Type: Spontaneous
  Country: AG (occurrence: AG)
  Receive Date: 20240314
  Receipt Date: 20240314
  Transmission Date: 20240410
  Serious: Yes (Other)
  Sender: FDA-Public Use
  Company Number: AG-009507513-2402ATG003659

PATIENT
  Sex: Male

DRUGS (1)
  1. KEYTRUDA [Suspect]
     Active Substance: PEMBROLIZUMAB
     Indication: Lung neoplasm malignant
     Dosage: UNK
     Dates: end: 20231214

REACTIONS (4)
  - Pseudostroke [Unknown]
  - Malaise [Unknown]
  - Asthenia [Unknown]
  - Ill-defined disorder [Unknown]
